FAERS Safety Report 5868498-X (Version None)
Quarter: 2008Q3

REPORT INFORMATION
  Report Type: 
  Country: None (occurrence: None)
  Receive Date: 20080828
  Receipt Date: 20080815
  Transmission Date: 20090109
  Serious: Yes (Hospitalization)
  Sender: FDA-Public Use
  Company Number: 230480K07USA

PATIENT
  Age: 29 Year
  Sex: Female
  Weight: 68.4932 kg

DRUGS (6)
  1. REBIF [Suspect]
     Indication: MULTIPLE SCLEROSIS
     Dosage: 44 MCG, 3 IN 1 WEEKS, SUBCUTANEOUS
     Route: 058
     Dates: start: 20030604, end: 20080701
  2. AMITRIPTYLINE HCL [Concomitant]
  3. LOESTRIN (ANOVLAR) [Concomitant]
  4. PROVIGIL [Concomitant]
  5. WELLBUTRIN [Concomitant]
  6. PEPCID [Concomitant]

REACTIONS (2)
  - MULTIPLE SCLEROSIS RELAPSE [None]
  - URINARY TRACT INFECTION [None]
